FAERS Safety Report 6472267-X (Version None)
Quarter: 2009Q4

REPORT INFORMATION
  Report Type: 
  Country: None (occurrence: None)
  Receive Date: 20091203
  Receipt Date: 20091124
  Transmission Date: 20100525
  Serious: Yes (Other)
  Sender: FDA-Public Use
  Company Number: KR-GENENTECH-294112

PATIENT
  Age: 56 Year
  Sex: Female

DRUGS (1)
  1. AVASTIN [Suspect]
     Indication: CORNEAL NEOVASCULARISATION
     Dosage: UNK

REACTIONS (1)
  - EYE HAEMORRHAGE [None]
